FAERS Safety Report 8957538 (Version 1)
Quarter: 2012Q4

REPORT INFORMATION
  Report Type: 
  Country: AU (occurrence: AU)
  Receive Date: 20121210
  Receipt Date: 20121210
  Transmission Date: 20130627
  Serious: Yes (Death)
  Sender: FDA-Public Use
  Company Number: AU-B.I. PHARMACEUTICALS,INC./RIDGEFIELD-2012-AU-01968AU

PATIENT
  Sex: Female

DRUGS (10)
  1. PRADAXA [Suspect]
     Indication: CEREBROVASCULAR ACCIDENT PROPHYLAXIS
     Dates: start: 20111014
  2. PRADAXA [Suspect]
     Indication: ATRIAL FIBRILLATION
  3. ISORDIL [Concomitant]
  4. ASPIRIN [Concomitant]
  5. ANGININE [Concomitant]
  6. METFORMIN [Concomitant]
  7. GLICLAZIDE [Concomitant]
  8. IRBESARTAN [Concomitant]
  9. SOTALOL [Concomitant]
  10. LERCANIDIPINE [Concomitant]

REACTIONS (1)
  - Myocardial infarction [Fatal]
